FAERS Safety Report 18407799 (Version 1)
Quarter: 2020Q4

REPORT INFORMATION
  Report Type: Spontaneous
  Country: JP (occurrence: JP)
  Receive Date: 20201020
  Receipt Date: 20201020
  Transmission Date: 20210114
  Serious: Yes (Other)
  Sender: FDA-Public Use
  Company Number: JP-ARBOR PHARMACEUTICALS, LLC-JP-2020ARB000853

PATIENT
  Sex: Male

DRUGS (3)
  1. REGNITE [Suspect]
     Active Substance: GABAPENTIN ENACARBIL
     Indication: RESTLESS LEGS SYNDROME
     Dosage: UNK
     Route: 048
     Dates: start: 202008
  2. GILTERITINIB [Suspect]
     Active Substance: GILTERITINIB
     Indication: LEUKAEMIA
     Dosage: 200 MG, ONCE DAILY
     Route: 048
  3. INSULIN [Concomitant]
     Active Substance: INSULIN NOS
     Indication: PRODUCT USED FOR UNKNOWN INDICATION
     Dosage: UNK

REACTIONS (4)
  - Internal haemorrhage [Recovered/Resolved]
  - Dizziness [Unknown]
  - Gingival bleeding [Recovered/Resolved]
  - Malaise [Unknown]
